FAERS Safety Report 21079949 (Version 3)
Quarter: 2022Q3

REPORT INFORMATION
  Report Type: Report from Study
  Country: IT (occurrence: IT)
  Receive Date: 20220714
  Receipt Date: 20220905
  Transmission Date: 20221027
  Serious: Yes (Death, Hospitalization)
  Sender: FDA-Public Use
  Company Number: IT-ABBVIE-22K-083-4466257-00

PATIENT
  Age: 73 Year
  Sex: Male

DRUGS (2)
  1. CARBIDOPA\LEVODOPA [Suspect]
     Active Substance: CARBIDOPA\LEVODOPA
     Indication: Parkinson^s disease
     Dosage: DAILY DOSE: 1358 MG; PUMP SETTING:MD: 5+3 CR: 3,6, ED: 3
     Route: 050
     Dates: start: 20190913, end: 20220624
  2. CARBIDOPA\LEVODOPA [Suspect]
     Active Substance: CARBIDOPA\LEVODOPA

REACTIONS (4)
  - Death [Fatal]
  - Sepsis [Fatal]
  - Inflammation [Fatal]
  - Embedded device [Unknown]

NARRATIVE: CASE EVENT DATE: 20220101
